FAERS Safety Report 17374373 (Version 1)
Quarter: 2020Q1

REPORT INFORMATION
  Report Type: Spontaneous
  Country: IL (occurrence: IL)
  Receive Date: 20200206
  Receipt Date: 20200206
  Transmission Date: 20200409
  Serious: Yes (Other)
  Sender: FDA-Public Use
  Company Number: IL-BRISTOL-MYERS SQUIBB COMPANY-BMS-2020-009281

PATIENT
  Age: 80 Year
  Sex: Female

DRUGS (1)
  1. ELIQUIS [Suspect]
     Active Substance: APIXABAN
     Indication: BRAIN NEOPLASM MALIGNANT
     Dosage: 5 MILLIGRAM, BID
     Route: 065

REACTIONS (3)
  - Cerebral haemorrhage [Unknown]
  - Cardiac disorder [Unknown]
  - Intentional product use issue [Unknown]
